FAERS Safety Report 13894369 (Version 5)
Quarter: 2018Q2

REPORT INFORMATION
  Report Type: Report from Study
  Country: None (occurrence: US)
  Receive Date: 20170822
  Receipt Date: 20180503
  Transmission Date: 20180711
  Serious: Yes (Other)
  Sender: FDA-Public Use
  Company Number: US-ABBVIE-17K-163-1967555-00

PATIENT
  Sex: Female

DRUGS (4)
  1. HUMIRA [Suspect]
     Active Substance: ADALIMUMAB
     Indication: RHEUMATOID ARTHRITIS
     Route: 058
  2. HUMIRA [Suspect]
     Active Substance: ADALIMUMAB
     Route: 058
  3. HUMIRA [Suspect]
     Active Substance: ADALIMUMAB
     Route: 058
  4. ARAVA [Suspect]
     Active Substance: LEFLUNOMIDE
     Indication: PRODUCT USED FOR UNKNOWN INDICATION
     Route: 065

REACTIONS (15)
  - Skin lesion [Recovering/Resolving]
  - Feeling abnormal [Unknown]
  - Red blood cell sedimentation rate increased [Recovering/Resolving]
  - Diarrhoea [Not Recovered/Not Resolved]
  - Back disorder [Unknown]
  - C-reactive protein increased [Recovering/Resolving]
  - Joint swelling [Recovering/Resolving]
  - Drug effect decreased [Unknown]
  - Back pain [Unknown]
  - Arthralgia [Recovering/Resolving]
  - Injection site pain [Recovering/Resolving]
  - Arthritis [Unknown]
  - Rheumatoid arthritis [Not Recovered/Not Resolved]
  - Sensitivity to weather change [Unknown]
  - Vomiting [Not Recovered/Not Resolved]

NARRATIVE: CASE EVENT DATE: 2017
